FAERS Safety Report 7606063-4 (Version None)
Quarter: 2011Q3

REPORT INFORMATION
  Report Type: 
  Country: None (occurrence: None)
  Receive Date: 20110713
  Receipt Date: 20110706
  Transmission Date: 20111222
  Serious: Yes (Other)
  Sender: FDA-Public Use
  Company Number: US-ELI_LILLY_AND_COMPANY-US201107001985

PATIENT
  Sex: Female

DRUGS (2)
  1. LEVEMIR [Concomitant]
     Dosage: UNK, EACH EVENING
  2. HUMALOG [Suspect]
     Indication: DIABETES MELLITUS
     Dosage: UNK, PRN

REACTIONS (3)
  - SYNCOPE [None]
  - WRIST FRACTURE [None]
  - RIB FRACTURE [None]
